FAERS Safety Report 20364312 (Version 1)
Quarter: 2022Q1

REPORT INFORMATION
  Report Type: Spontaneous
  Country: US (occurrence: None)
  Receive Date: 20220121
  Receipt Date: 20220121
  Transmission Date: 20220424
  Serious: No
  Sender: FDA-Public Use
  Company Number: None

PATIENT
  Age: 38 Year
  Sex: Female
  Weight: 51 kg

DRUGS (1)
  1. SULFAMETHOXAZOLE\TRIMETHOPRIM [Suspect]
     Active Substance: SULFAMETHOXAZOLE\TRIMETHOPRIM
     Dosage: OTHER QUANTITY : 800/160 MG;?FREQUENCY : TWICE A DAY;?
     Route: 048
     Dates: start: 20210823, end: 20210824

REACTIONS (2)
  - Lip swelling [None]
  - Blister [None]

NARRATIVE: CASE EVENT DATE: 20210824
